FAERS Safety Report 5279293-7 (Version None)
Quarter: 2007Q1

REPORT INFORMATION
  Report Type: 
  Country: None (occurrence: None)
  Receive Date: 20070328
  Receipt Date: 20060524
  Transmission Date: 20070707
  Serious: No
  Sender: FDA-Public Use
  Company Number: US-AMGEN-US180083

PATIENT
  Sex: Female

DRUGS (3)
  1. NEULASTA [Suspect]
     Indication: CHEMOTHERAPY
     Dates: start: 20060301, end: 20060301
  2. NEUPOGEN [Suspect]
     Dates: start: 20060301
  3. EMEND [Concomitant]
     Route: 065

REACTIONS (7)
  - ABDOMINAL PAIN [None]
  - DYSPNOEA [None]
  - HYPERAESTHESIA [None]
  - NAUSEA [None]
  - PELVIC PAIN [None]
  - VISUAL DISTURBANCE [None]
  - VOMITING [None]
